FAERS Safety Report 8226933 (Version 2)
Quarter: 2013Q3

REPORT INFORMATION
  Report Type: Spontaneous
  Country: US (occurrence: US)
  Receive Date: 20111103
  Receipt Date: 20130708
  Transmission Date: 20140515
  Serious: No
  Sender: FDA-Public Use
  Company Number: US-AMGEN-USASP2011037875

PATIENT
  Age: 66 Year
  Sex: Female
  Weight: 63.49 kg

DRUGS (9)
  1. ENBREL [Suspect]
     Indication: RHEUMATOID ARTHRITIS
     Dosage: 50 MG, QWK
     Route: 058
     Dates: start: 20110116
  2. HUMALOG [Concomitant]
     Dosage: 100/ML, UNK, UNK
  3. REQUIP [Concomitant]
     Dosage: 1 MG, UNK
  4. VIVELLE                            /00045401/ [Concomitant]
     Dosage: DIS 0.05 MG, UNK
  5. TRAMADOL HYDROCHLORIDE [Concomitant]
     Dosage: 50 MG, UNK
  6. GABAPENTIN [Concomitant]
     Dosage: 300 MG, UNK
  7. VITAMIN D                          /00107901/ [Concomitant]
     Dosage: 1000 UNIT, UNK
  8. SYMLINPEN [Concomitant]
     Dosage: 60 INJ. 1000 MUG, UNK
  9. PROLIA [Concomitant]
     Dosage: SOL 60 MG/ML, UNK

REACTIONS (5)
  - Nausea [Recovered/Resolved]
  - Vomiting [Recovered/Resolved]
  - Adverse event [Unknown]
  - Osteoarthritis [Unknown]
  - Bronchitis [Not Recovered/Not Resolved]
